FAERS Safety Report 8343967-1 (Version None)
Quarter: 2012Q1

REPORT INFORMATION
  Report Type: 
  Country: None (occurrence: None)
  Receive Date: 20120330
  Receipt Date: 20110414
  Transmission Date: 20120608
  Serious: Yes (Other)
  Sender: FDA-Public Use
  Company Number: PHHY2011US33086

PATIENT
  Age: 73 Year
  Sex: Male
  Weight: 60.3 kg

DRUGS (3)
  1. EXELON [Suspect]
     Indication: DEMENTIA ALZHEIMER'S TYPE
     Dosage: 9.5 MG, PATCH DAILY, TRANSDERMAL
     Route: 062
     Dates: start: 20080101
  2. CALCIUM CARBONATE [Concomitant]
  3. VITAMIN D [Concomitant]

REACTIONS (2)
  - HAEMATOCRIT DECREASED [None]
  - HYPOTENSION [None]
